FAERS Safety Report 8080676-0 (Version None)
Quarter: 2012Q1

REPORT INFORMATION
  Report Type: 
  Country: None (occurrence: None)
  Receive Date: 20120130
  Receipt Date: 20120123
  Transmission Date: 20120608
  Serious: Yes (Other)
  Sender: FDA-Public Use
  Company Number: PHHY2011CA70656

PATIENT
  Sex: Female

DRUGS (5)
  1. SYMBICORT [Concomitant]
     Dosage: 200 UG, UNK (PRN)
  2. ZOLEDRONOC ACID [Suspect]
     Indication: OSTEOPOROSIS
     Dosage: 5 MG, UNK
     Route: 042
     Dates: start: 20110725
  3. RABEPRAZOLE SODIUM [Concomitant]
     Dosage: 20 MG, QD
  4. VITAMIN D [Concomitant]
     Dosage: 400 IU, UNK
  5. CRESTOR [Concomitant]
     Dosage: 20 MG, QD
     Route: 048

REACTIONS (14)
  - DYSPNOEA [None]
  - INSOMNIA [None]
  - HEADACHE [None]
  - HEARING IMPAIRED [None]
  - CHILLS [None]
  - NAUSEA [None]
  - CHEST PAIN [None]
  - FATIGUE [None]
  - TREMOR [None]
  - ARTHRALGIA [None]
  - OEDEMA PERIPHERAL [None]
  - CHEST DISCOMFORT [None]
  - BONE DISORDER [None]
  - JOINT SWELLING [None]
